FAERS Safety Report 10047882 (Version 5)
Quarter: 2014Q2

REPORT INFORMATION
  Report Type: Spontaneous
  Country: US (occurrence: US)
  Receive Date: 20140331
  Receipt Date: 20140509
  Transmission Date: 20141212
  Serious: Yes (Hospitalization)
  Sender: FDA-Public Use
  Company Number: US-BAXTER-2014BAX015426

PATIENT
  Sex: Female
  Weight: 88 kg

DRUGS (2)
  1. DIANEAL LOW CALCIUM [Suspect]
     Indication: RENAL FAILURE CHRONIC
     Route: 033
     Dates: start: 2013
  2. DIANEAL LOW CALCIUM [Suspect]
     Indication: RENAL FAILURE CHRONIC
     Route: 033
     Dates: start: 2013

REACTIONS (6)
  - Asthma [Unknown]
  - Blood glucose decreased [Recovered/Resolved]
  - Fluid overload [Recovering/Resolving]
  - Pain in extremity [Not Recovered/Not Resolved]
  - Procedural pain [Unknown]
  - Abdominal distension [Recovering/Resolving]
